FAERS Safety Report 5351606-7 (Version None)
Quarter: 2007Q2

REPORT INFORMATION
  Report Type: 
  Country: None (occurrence: None)
  Receive Date: 20070522
  Receipt Date: 20060330
  Transmission Date: 20071010
  Serious: Yes (Other)
  Sender: FDA-Public Use
  Company Number: 2006BH007241

PATIENT

DRUGS (1)
  1. HEPARIN SODIUM [Suspect]
     Indication: DIALYSIS

REACTIONS (1)
  - HAEMORRHAGE [None]
